FAERS Safety Report 18292891 (Version 1)
Quarter: 2020Q3

REPORT INFORMATION
  Report Type: Spontaneous
  Country: FR (occurrence: FR)
  Receive Date: 20200922
  Receipt Date: 20200922
  Transmission Date: 20201103
  Serious: Yes (Hospitalization)
  Sender: FDA-Public Use
  Company Number: FR-B.I. PHARMACEUTICALS,INC./RIDGEFIELD-2020-BI-048026

PATIENT
  Age: 84 Year
  Sex: Female
  Weight: 47 kg

DRUGS (8)
  1. EUPANTOL [Suspect]
     Active Substance: PANTOPRAZOLE SODIUM
     Indication: GASTROINTESTINAL PROCEDURAL COMPLICATION
  2. ZOPHREN [ONDANSETRON] [Suspect]
     Active Substance: ONDANSETRON
     Indication: GASTROINTESTINAL PROCEDURAL COMPLICATION
  3. LOVENOX [Suspect]
     Active Substance: ENOXAPARIN SODIUM
     Indication: PRODUCT USED FOR UNKNOWN INDICATION
     Route: 058
  4. SUFENTANIL [Suspect]
     Active Substance: SUFENTANIL
     Indication: SPINAL ANAESTHESIA
     Route: 037
  5. BUPIVACAINE. [Suspect]
     Active Substance: BUPIVACAINE
     Indication: SPINAL ANAESTHESIA
     Route: 037
  6. HYPNOVEL [MIDAZOLAM] [Suspect]
     Active Substance: MIDAZOLAM
     Indication: SPINAL ANAESTHESIA
     Route: 037
  7. APRANAX [NAPROXEN] [Suspect]
     Active Substance: NAPROXEN
     Indication: POSTOPERATIVE ANALGESIA
  8. CATAPRESSAN [Suspect]
     Active Substance: CLONIDINE
     Indication: ANAESTHESIA

REACTIONS (2)
  - Anaemia [Recovered/Resolved]
  - Neutropenia [Recovered/Resolved]

NARRATIVE: CASE EVENT DATE: 20200623
